FAERS Safety Report 8595046-6 (Version None)
Quarter: 2012Q3

REPORT INFORMATION
  Report Type: 
  Country: None (occurrence: None)
  Receive Date: 20120815
  Receipt Date: 20120808
  Transmission Date: 20120928
  Serious: Yes (Other)
  Sender: FDA-Public Use
  Company Number: US-PFIZER INC-2012194561

PATIENT
  Sex: Female

DRUGS (1)
  1. NEURONTIN [Suspect]

REACTIONS (4)
  - MACULAR DEGENERATION [None]
  - EYE DISORDER [None]
  - THERMAL BURN [None]
  - ORTHOSTATIC HYPERTENSION [None]
